FAERS Safety Report 9584239 (Version 1)
Quarter: 2013Q4

REPORT INFORMATION
  Report Type: Spontaneous
  Country: US (occurrence: US)
  Receive Date: 20131002
  Receipt Date: 20131002
  Transmission Date: 20140711
  Serious: No
  Sender: FDA-Public Use
  Company Number: US-AMGEN-USASP2013051718

PATIENT
  Age: 67 Year
  Sex: Female
  Weight: 99.77 kg

DRUGS (10)
  1. ENBREL [Suspect]
     Indication: RHEUMATOID ARTHRITIS
     Dosage: UNK
     Route: 065
  2. CALCIUM [Concomitant]
     Dosage: UNK
  3. DIOVAN [Concomitant]
     Dosage: UNK
  4. LEFLUNOMIDE [Concomitant]
     Dosage: UNK
  5. METOPROLOL [Concomitant]
     Dosage: UNK
  6. ORENCIA [Concomitant]
     Route: 058
  7. PREDNISONE [Concomitant]
     Dosage: UNK
  8. RECLAST [Concomitant]
     Dosage: UNK
  9. SULFASALAZIN [Concomitant]
     Dosage: UNK
  10. VITAMIN B [Concomitant]
     Dosage: UNK

REACTIONS (1)
  - Drug ineffective [Unknown]
